FAERS Safety Report 25699811 (Version 2)
Quarter: 2025Q4

REPORT INFORMATION
  Report Type: Spontaneous
  Country: US (occurrence: US)
  Receive Date: 20250819
  Receipt Date: 20251007
  Transmission Date: 20260119
  Serious: Yes (Other)
  Sender: SANOFI AVENTIS
  Company Number: US-SA-2025SA246068

PATIENT
  Age: 63 Year
  Sex: Male
  Weight: 82 kg

DRUGS (22)
  1. FABRAZYME [Suspect]
     Active Substance: AGALSIDASE BETA
     Indication: Fabry^s disease
     Dosage: 90 MG, QOW
     Route: 042
     Dates: start: 20230823
  2. SODIUM CHLORIDE [Concomitant]
     Active Substance: SODIUM CHLORIDE
     Dosage: UNK
  3. STERILE WATER [Concomitant]
     Active Substance: WATER
  4. EPINEPHRINE [Concomitant]
     Active Substance: EPINEPHRINE
  5. NIFEDIPINE [Concomitant]
     Active Substance: NIFEDIPINE
  6. TAMSULOSIN HYDROCHLORIDE [Concomitant]
     Active Substance: TAMSULOSIN HYDROCHLORIDE
  7. TYLENOL EXTRA STRENGTH [Concomitant]
     Active Substance: ACETAMINOPHEN
  8. MIRALAX [Concomitant]
     Active Substance: POLYETHYLENE GLYCOL 3350
  9. PEPCID [Concomitant]
     Active Substance: FAMOTIDINE
  10. SENNA [Concomitant]
     Active Substance: SENNOSIDES
  11. SODIUM CHLORIDE [Concomitant]
     Active Substance: SODIUM CHLORIDE
  12. SOFOSBUVIR AND VELPATASVIR [Concomitant]
     Active Substance: SOFOSBUVIR\VELPATASVIR
  13. VALCYTE [Concomitant]
     Active Substance: VALGANCICLOVIR HYDROCHLORIDE
  14. MENTHOL [Concomitant]
     Active Substance: MENTHOL
  15. LORATADINE [Concomitant]
     Active Substance: LORATADINE
  16. ENTECAVIR [Concomitant]
     Active Substance: ENTECAVIR
  17. TUMS [Concomitant]
     Active Substance: CALCIUM CARBONATE
  18. DIPHENHYDRAMINE HYDROCHLORIDE [Concomitant]
     Active Substance: DIPHENHYDRAMINE HYDROCHLORIDE
     Dosage: UNK
  19. CEPTAZ [Concomitant]
     Active Substance: CEFTAZIDIME
  20. PREDNISOLONE [Concomitant]
     Active Substance: PREDNISOLONE
     Dosage: UNK
  21. COREG [Concomitant]
     Active Substance: CARVEDILOL
     Dosage: UNK
  22. ONDANSETRON HYDROCHLORIDE [Concomitant]
     Active Substance: ONDANSETRON HYDROCHLORIDE
     Dosage: UNK

REACTIONS (10)
  - Hyperkalaemia [Unknown]
  - Acute kidney injury [Unknown]
  - Anaemia [Unknown]
  - Costochondritis [Unknown]
  - Infusion site pain [Unknown]
  - Dysuria [Unknown]
  - Anxiety [Unknown]
  - Chest pain [Unknown]
  - Headache [Unknown]
  - Myalgia [Unknown]

NARRATIVE: CASE EVENT DATE: 20250810
